FAERS Safety Report 8428351 (Version 3)
Quarter: 2012Q4

REPORT INFORMATION
  Report Type: 
  Country: US (occurrence: US)
  Receive Date: 20120227
  Receipt Date: 20120830
  Transmission Date: 20130627
  Serious: Yes (Hospitalization)
  Sender: FDA-Public Use
  Company Number: US-BAYER-2012-017442

PATIENT
  Age: 45 Year
  Sex: Female
  Weight: 82.54 kg

DRUGS (15)
  1. YASMIN [Suspect]
     Indication: ACNE
     Dosage: UNK
     Dates: start: 20050721, end: 20051206
  2. YASMIN [Suspect]
     Indication: ACNE
     Dosage: UNK
     Dates: start: 20060113, end: 20070210
  3. METFORMIN ER [Concomitant]
     Dosage: 250 mg, HS
  4. ZOCOR [Concomitant]
     Dosage: 40 mg, HS
  5. WELLBUTRIN SR [Concomitant]
     Dosage: 200 mg, BID
  6. GEODON [Concomitant]
     Dosage: 40 mg, BID
  7. VISTARIL [Concomitant]
     Dosage: 200 mg, BID
  8. TRAZODONE [Concomitant]
     Dosage: 150 mg, HS
  9. BUSPAR [Concomitant]
     Dosage: 15 mg, BID
  10. PAXIL [Concomitant]
     Dosage: UNK
  11. IBUPROFEN [IBUPROFEN] [Concomitant]
     Dosage: 800 mg, PRN
  12. GLUCOPHAGE [Concomitant]
  13. PROZAC [Concomitant]
  14. METFORMIN [Concomitant]
     Dosage: 500 daily
  15. WELLBUTRIN [Concomitant]
     Dosage: 200 UNK, BID

REACTIONS (4)
  - Pulmonary embolism [None]
  - Pain [None]
  - Depression [None]
  - Anxiety [None]
